FAERS Safety Report 7179777-0 (Version None)
Quarter: 2010Q4

REPORT INFORMATION
  Report Type: 
  Country: None (occurrence: None)
  Receive Date: 20101208
  Receipt Date: 20101201
  Transmission Date: 20110411
  Serious: Yes (Other)
  Sender: FDA-Public Use
  Company Number: 20109523

PATIENT
  Sex: Female

DRUGS (1)
  1. LIORESAL [Suspect]
     Indication: MUSCLE SPASTICITY
     Dosage: SEE B5 MCG, DAILY, INTRATHECAL
     Route: 037

REACTIONS (8)
  - DRUG EFFECT DECREASED [None]
  - DRUG LEVEL DECREASED [None]
  - HEADACHE [None]
  - MUSCLE SPASMS [None]
  - MUSCLE SPASTICITY [None]
  - NEURALGIA [None]
  - PAIN [None]
  - SURGICAL FAILURE [None]
